FAERS Safety Report 17507408 (Version 2)
Quarter: 2020Q2

REPORT INFORMATION
  Report Type: Report from Study
  Country: None (occurrence: AR)
  Receive Date: 20200306
  Receipt Date: 20200425
  Transmission Date: 20200713
  Serious: Yes (Other)
  Sender: FDA-Public Use
  Company Number: AR-ABBVIE-19K-007-2938998-00

PATIENT
  Age: 62 Year
  Sex: Male

DRUGS (1)
  1. HUMIRA [Suspect]
     Active Substance: ADALIMUMAB
     Indication: PSORIATIC ARTHROPATHY
     Route: 058
     Dates: start: 20120821, end: 201909

REACTIONS (7)
  - Asthma [Recovering/Resolving]
  - Liver disorder [Not Recovered/Not Resolved]
  - Hepatocellular carcinoma [Unknown]
  - Psoriatic arthropathy [Not Recovered/Not Resolved]
  - Bronchitis [Recovering/Resolving]
  - Bronchitis [Recovered/Resolved]
  - Asthma [Recovered/Resolved]

NARRATIVE: CASE EVENT DATE: 201906
